FAERS Safety Report 11120256 (Version 1)
Quarter: 2015Q2

REPORT INFORMATION
  Report Type: Spontaneous
  Country: FR (occurrence: FR)
  Receive Date: 20150518
  Receipt Date: 20150518
  Transmission Date: 20150821
  Serious: Yes (Death)
  Sender: FDA-Public Use
  Company Number: FR-MYLANLABS-2015M1016112

PATIENT

DRUGS (3)
  1. IFOSFAMIDE. [Suspect]
     Active Substance: IFOSFAMIDE
     Indication: METASTASES TO PLEURA
     Dosage: 2 G/M2/DAY FOR 5 DAYS EVERY 3 WEEKS
     Route: 065
  2. APREPITANT. [Interacting]
     Active Substance: APREPITANT
     Dosage: 80 MG/DAY X 5 DAYS
     Route: 065
  3. DOXORUBICIN [Concomitant]
     Active Substance: DOXORUBICIN
     Indication: METASTASES TO LUNG
     Dosage: 60 MG/M2 EVERY 3 WEEKS
     Route: 065

REACTIONS (2)
  - Drug interaction [Fatal]
  - Encephalopathy [Fatal]
